FAERS Safety Report 24244427 (Version 2)
Quarter: 2024Q3

REPORT INFORMATION
  Report Type: Spontaneous
  Country: US (occurrence: US)
  Receive Date: 20240823
  Receipt Date: 20240904
  Transmission Date: 20241016
  Serious: Yes (Other)
  Sender: NOVARTIS
  Company Number: US-002147023-NVSC2024US169860

PATIENT
  Age: 83 Year
  Sex: Female
  Weight: 83 kg

DRUGS (1)
  1. LEQVIO [Suspect]
     Active Substance: INCLISIRAN SODIUM
     Indication: Lipids abnormal
     Dosage: UNK (INFUSION) EVERY MONTHS X7
     Route: 058
     Dates: start: 20240207

REACTIONS (4)
  - Arthritis [Unknown]
  - Pain [Unknown]
  - Arthralgia [Unknown]
  - Myositis [Unknown]

NARRATIVE: CASE EVENT DATE: 20240701
